FAERS Safety Report 7360802-9 (Version None)
Quarter: 2011Q1

REPORT INFORMATION
  Report Type: 
  Country: None (occurrence: None)
  Receive Date: 20110318
  Receipt Date: 20110308
  Transmission Date: 20110831
  Serious: Yes (Death, Hospitalization)
  Sender: FDA-Public Use
  Company Number: CH-SANOFI-AVENTIS-2011SA014510

PATIENT
  Age: 62 Year
  Sex: Male

DRUGS (1)
  1. MULTAQ [Suspect]
     Indication: TACHYCARDIA
     Route: 048
     Dates: start: 20100823, end: 20100824

REACTIONS (4)
  - NAUSEA [None]
  - CARDIOGENIC SHOCK [None]
  - VOMITING [None]
  - OFF LABEL USE [None]
